FAERS Safety Report 18381031 (Version 1)
Quarter: 2020Q4

REPORT INFORMATION
  Report Type: Spontaneous
  Country: GB (occurrence: GB)
  Receive Date: 20201014
  Receipt Date: 20201014
  Transmission Date: 20210114
  Serious: Yes (Life-Threatening, Hospitalization)
  Sender: FDA-Public Use
  Company Number: GB-TEVA-2020-GB-1837153

PATIENT
  Age: 94 Year
  Sex: Female
  Weight: 75 kg

DRUGS (3)
  1. IBUPROFEN. [Suspect]
     Active Substance: IBUPROFEN
     Indication: LIGAMENT SPRAIN
     Dosage: 600 MG
     Route: 048
     Dates: start: 20200816, end: 20200902
  2. NAPROXEN. [Suspect]
     Active Substance: NAPROXEN
     Indication: LIGAMENT SPRAIN
     Dosage: 1000 MG
     Route: 048
     Dates: start: 20200902, end: 20200906
  3. AMLODIPINE [Concomitant]
     Active Substance: AMLODIPINE BESYLATE

REACTIONS (2)
  - Acute kidney injury [Recovering/Resolving]
  - Rectal haemorrhage [Recovering/Resolving]

NARRATIVE: CASE EVENT DATE: 20200906
